FAERS Safety Report 6376030-X (Version None)
Quarter: 2009Q3

REPORT INFORMATION
  Report Type: 
  Country: None (occurrence: None)
  Receive Date: 20090924
  Receipt Date: 20090915
  Transmission Date: 20100115
  Serious: Yes (Hospitalization, Other)
  Sender: FDA-Public Use
  Company Number: PHEH2009US06510

PATIENT
  Sex: Female

DRUGS (9)
  1. GLEEVEC [Suspect]
     Indication: CHRONIC MYELOID LEUKAEMIA
     Dosage: 400 MG, QD
     Route: 048
     Dates: start: 20050101, end: 20080101
  2. SPRYCEL [Suspect]
     Dosage: 100 MG, UNK
  3. ASPIRIN [Concomitant]
  4. FUROSEMIDE [Concomitant]
  5. LIPITOR [Concomitant]
  6. LISINOPRIL [Concomitant]
  7. CARVEDILOL [Concomitant]
  8. VITAMINS [Concomitant]
  9. MINERALS NOS [Concomitant]

REACTIONS (9)
  - ALTERED STATE OF CONSCIOUSNESS [None]
  - AMNESIA [None]
  - CARDIAC DISORDER [None]
  - CARDIAC FAILURE CONGESTIVE [None]
  - CEREBRAL ARTERY THROMBOSIS [None]
  - DYSPNOEA [None]
  - HEADACHE [None]
  - PIGMENTATION DISORDER [None]
  - SKIN DISCOLOURATION [None]
